FAERS Safety Report 10223867 (Version 1)
Quarter: 2014Q2

REPORT INFORMATION
  Report Type: Spontaneous
  Country: DE (occurrence: DE)
  Receive Date: 20140609
  Receipt Date: 20140609
  Transmission Date: 20141212
  Serious: Yes (Hospitalization)
  Sender: FDA-Public Use
  Company Number: DE-RANBAXY-2014R1-81854

PATIENT
  Age: 59 Year
  Sex: Female

DRUGS (1)
  1. AMOXICILLINE [Suspect]
     Indication: UPPER RESPIRATORY TRACT INFECTION
     Dosage: UNK
     Route: 065
     Dates: start: 20140311, end: 20140314

REACTIONS (1)
  - Drug eruption [Recovering/Resolving]
